FAERS Safety Report 25574710 (Version 1)
Quarter: 2025Q3

REPORT INFORMATION
  Report Type: Spontaneous
  Country: US (occurrence: US)
  Receive Date: 20250718
  Receipt Date: 20250718
  Transmission Date: 20251020
  Serious: No
  Sender: ROCHE
  Company Number: US-ROCHE-10000334435

PATIENT
  Age: 37 Year
  Sex: Male

DRUGS (6)
  1. MYCOPHENOLATE MOFETIL [Suspect]
     Active Substance: MYCOPHENOLATE MOFETIL
     Indication: Prophylaxis against transplant rejection
     Route: 065
  2. MYCOPHENOLATE MOFETIL [Suspect]
     Active Substance: MYCOPHENOLATE MOFETIL
     Route: 065
  3. TACROLIMUS [Concomitant]
     Active Substance: TACROLIMUS
  4. PREDNISONE [Concomitant]
     Active Substance: PREDNISONE
  5. SIROLIMUS [Concomitant]
     Active Substance: SIROLIMUS
  6. DARBEPOETIN ALFA [Concomitant]
     Active Substance: DARBEPOETIN ALFA

REACTIONS (1)
  - Apoptosis [Unknown]
